FAERS Safety Report 5327282-6 (Version None)
Quarter: 2007Q2

REPORT INFORMATION
  Report Type: 
  Country: None (occurrence: None)
  Receive Date: 20070517
  Receipt Date: 20070507
  Transmission Date: 20071010
  Serious: Yes (Hospitalization)
  Sender: FDA-Public Use
  Company Number: JP-ROCHE-494835

PATIENT
  Age: 8 Year
  Sex: Male
  Weight: 33.5 kg

DRUGS (4)
  1. TAMIFLU [Suspect]
     Route: 048
     Dates: start: 20070412, end: 20070412
  2. SOLDEM [Concomitant]
     Dosage: TRADE NAME: SOLDEM 3A. DOSAGE REGIMEN: 60 ML/H ON 12 APR 2007 AND 50ML/H FROM 14 TO 17 APR 2007
     Route: 041
     Dates: start: 20070412, end: 20070417
  3. VEEN D [Concomitant]
     Route: 041
     Dates: start: 20070412, end: 20070414
  4. C-PARA [Concomitant]
     Route: 041
     Dates: start: 20070412, end: 20070414

REACTIONS (2)
  - ABNORMAL BEHAVIOUR [None]
  - VISION BLURRED [None]
